FAERS Safety Report 8573611-X (Version None)
Quarter: 2012Q3

REPORT INFORMATION
  Report Type: 
  Country: None (occurrence: None)
  Receive Date: 20120806
  Receipt Date: 20120724
  Transmission Date: 20120928
  Serious: No
  Sender: FDA-Public Use
  Company Number: US-ASTRAZENECA-2012SE51998

PATIENT
  Age: 86 Year
  Sex: Female
  Weight: 65.8 kg

DRUGS (4)
  1. CIRCULATION PILLS [Concomitant]
  2. SYMBICORT [Suspect]
     Dosage: 160/4.5 MCG TWO PUFFS ONCE A DAY
     Route: 055
  3. SYMBICORT [Suspect]
     Indication: ASTHMA
     Dosage: 160/4.5 MCG TWO PUFFS TWICE A DAY
     Route: 055
     Dates: start: 20090101
  4. CELEBREX [Concomitant]

REACTIONS (7)
  - PULMONARY CONGESTION [None]
  - PNEUMONIA [None]
  - OFF LABEL USE [None]
  - DRUG INEFFECTIVE [None]
  - BODY HEIGHT DECREASED [None]
  - BRONCHITIS [None]
  - DYSPNOEA [None]
